FAERS Safety Report 15599367 (Version 1)
Quarter: 2018Q4

REPORT INFORMATION
  Report Type: Spontaneous
  Country: US (occurrence: US)
  Receive Date: 20181108
  Receipt Date: 20181108
  Transmission Date: 20190205
  Serious: Yes (Hospitalization, Other)
  Sender: FDA-Public Use
  Company Number: US-PFIZER INC-2018449564

PATIENT
  Age: 80 Year
  Sex: Female
  Weight: 52.16 kg

DRUGS (10)
  1. CARDIZEM [DILTIAZEM HYDROCHLORIDE] [Concomitant]
     Indication: ATRIAL FIBRILLATION
  2. SUPER B COMPLEX [VITAMIN B COMPLEX] [Concomitant]
     Dosage: 1000 UG, 1X/DAY (IN THE MORNING)
     Route: 048
  3. METOPROLOL. [Concomitant]
     Active Substance: METOPROLOL
     Indication: ATRIAL FIBRILLATION
  4. METOPROLOL. [Concomitant]
     Active Substance: METOPROLOL
     Indication: HEART RATE ABNORMAL
     Dosage: 12.5 MG, 2X/DAY (IN THE MORNING AND AT NIGHT)
     Route: 048
  5. LASIX [Concomitant]
     Active Substance: FUROSEMIDE
     Indication: SWELLING
     Dosage: 30 MG, 1X/DAY
     Route: 048
  6. VITAMIN D [COLECALCIFEROL] [Concomitant]
     Dosage: 2000 MG, UNK
  7. TIKOSYN [Suspect]
     Active Substance: DOFETILIDE
     Indication: ATRIAL FIBRILLATION
     Dosage: 125 UG, 2X/DAY
     Route: 048
  8. POTASSIUM [Concomitant]
     Active Substance: POTASSIUM
     Dosage: 20 MG, 1X/DAY
     Route: 048
  9. FISH OIL [Concomitant]
     Active Substance: FISH OIL
     Indication: ROUTINE HEALTH MAINTENANCE
     Dosage: 1000 MG, 1X/DAY (ONCE AT NIGHT)
     Route: 048
  10. CARDIZEM [DILTIAZEM HYDROCHLORIDE] [Concomitant]
     Indication: HEART RATE ABNORMAL
     Dosage: 120 MG, 2X/DAY
     Route: 048

REACTIONS (4)
  - Heart rate irregular [Recovered/Resolved]
  - Myocardial infarction [Unknown]
  - Intentional product misuse [Unknown]
  - Oxygen saturation decreased [Unknown]

NARRATIVE: CASE EVENT DATE: 201809
